FAERS Safety Report 4891230-3 (Version None)
Quarter: 2006Q1

REPORT INFORMATION
  Report Type: 
  Country: None (occurrence: None)
  Receive Date: 20060125
  Receipt Date: 20060117
  Transmission Date: 20060701
  Serious: Yes (Hospitalization)
  Sender: FDA-Public Use
  Company Number: 2006AP00338

PATIENT
  Age: 54 Year
  Sex: Female

DRUGS (6)
  1. PROPOFOL [Suspect]
     Indication: GENERAL ANAESTHESIA
     Dates: start: 20050711
  2. EZETROL [Suspect]
     Indication: METABOLIC DISORDER
     Route: 048
     Dates: start: 20050315
  3. ACTRAPID [Concomitant]
  4. ADALAT [Concomitant]
     Indication: ESSENTIAL HYPERTENSION
  5. CALTRATE [Concomitant]
     Indication: GLOMERULONEPHRITIS CHRONIC
  6. ATENOLOL [Concomitant]
     Indication: ESSENTIAL HYPERTENSION

REACTIONS (2)
  - PANCREATITIS [None]
  - RENAL IMPAIRMENT [None]
